FAERS Safety Report 9232656 (Version 4)
Quarter: 2013Q3

REPORT INFORMATION
  Report Type: Spontaneous
  Country: US (occurrence: US)
  Receive Date: 20130416
  Receipt Date: 20130729
  Transmission Date: 20140515
  Serious: Yes (Other)
  Sender: FDA-Public Use
  Company Number: US-SHIRE-ALL1-2013-02302

PATIENT
  Age: 55 Year
  Sex: Male
  Weight: 77.1 kg

DRUGS (28)
  1. VPRIV [Suspect]
     Indication: GAUCHER^S DISEASE
     Dosage: 5400 IU, 1X/2WKS
     Route: 041
  2. ATORVASTATIN [Concomitant]
     Indication: PRODUCT USED FOR UNKNOWN INDICATION
     Dosage: 20 MG, 1X/DAY:QD (BEDTIME)
     Route: 048
     Dates: start: 20121212
  3. CALCIUM 600 + D [Concomitant]
     Indication: PRODUCT USED FOR UNKNOWN INDICATION
     Dosage: 200 MG, 2X/DAY:BID
     Route: 048
     Dates: start: 20100824
  4. CLONIDINE [Concomitant]
     Indication: PRODUCT USED FOR UNKNOWN INDICATION
     Dosage: 0.2 MG, 3X/DAY:TID
     Route: 048
     Dates: start: 20130602
  5. COLCHICINE [Concomitant]
     Indication: GOUT
     Dosage: 0.6 MG, AS REQ^D (TWICE DAILY)
     Route: 048
     Dates: start: 20130602
  6. DHEA [Concomitant]
     Indication: PRODUCT USED FOR UNKNOWN INDICATION
     Dosage: 50 MG, 1X/DAY:QD
     Route: 048
     Dates: start: 20100824
  7. DIOVAN [Concomitant]
     Indication: PRODUCT USED FOR UNKNOWN INDICATION
     Dosage: 160 MG, 1X/DAY:QD
     Route: 048
     Dates: start: 20130603
  8. DIPHENOXYLATE HCL AND ATROPINE SULFATE [Concomitant]
     Indication: DIARRHOEA
     Dosage: 0.025 MG, AS REQ^D (4 TIMES/DAY)
     Route: 048
     Dates: start: 20130408
  9. FUROSEMIDE [Concomitant]
     Indication: PRODUCT USED FOR UNKNOWN INDICATION
     Dosage: 40 MG, AS REQ^D
     Route: 048
  10. GENGRAF [Concomitant]
     Indication: PRODUCT USED FOR UNKNOWN INDICATION
     Dosage: 25 MG, 3X/DAY:TID
     Route: 048
     Dates: start: 20130408
  11. LEVOTHYROXINE SODIUM [Concomitant]
     Indication: PRODUCT USED FOR UNKNOWN INDICATION
     Dosage: 100 ?G, 1X/DAY:QD
     Route: 048
     Dates: start: 20130218
  12. METOPROLOL TARTRATE [Concomitant]
     Indication: PRODUCT USED FOR UNKNOWN INDICATION
     Dosage: 100 MG, 2X/DAY:BID
     Route: 048
     Dates: start: 20110919
  13. VITAMINS NOS [Concomitant]
     Indication: PRODUCT USED FOR UNKNOWN INDICATION
     Dosage: 1 DF, 1X/DAY:QD
     Route: 048
     Dates: start: 20100824
  14. MYCOPHENOLATE MOFETIL [Concomitant]
     Indication: PRODUCT USED FOR UNKNOWN INDICATION
     Dosage: 500 MG (2X250MG CAPSULES), 2X/DAY:BID
     Route: 048
     Dates: start: 20130408
  15. NATEGLINIDE [Concomitant]
     Indication: PRODUCT USED FOR UNKNOWN INDICATION
     Dosage: 60 MG, 3X/DAY:TID
     Route: 048
  16. PREDNISONE [Concomitant]
     Indication: PRODUCT USED FOR UNKNOWN INDICATION
     Dosage: 8 MG (8X1MG), 1X/DAY:QD
     Route: 048
     Dates: start: 20070411
  17. PROVENTIL HFA                      /00139501/ [Concomitant]
     Indication: PRODUCT USED FOR UNKNOWN INDICATION
     Dosage: 2 DF (PUFFS), 4X/DAY:QID
     Route: 055
  18. SODIUM BICARBONATE [Concomitant]
     Indication: PRODUCT USED FOR UNKNOWN INDICATION
     Dosage: 1300 MG (2X650 MG), 2X/DAY:BID
     Route: 048
     Dates: start: 20110601
  19. SULFAMETHOXAZOLE AND TRIMETHOPRIM [Concomitant]
     Indication: PRODUCT USED FOR UNKNOWN INDICATION
     Dosage: 1 DF, 1X/DAY:QD (BEDTIME)
     Route: 048
     Dates: start: 20100824
  20. ZEMPLAR [Concomitant]
     Indication: PRODUCT USED FOR UNKNOWN INDICATION
     Dosage: 1 ?G, 1X/DAY:QD (AM)
     Route: 048
     Dates: start: 20130325
  21. MAGNESIUM [Concomitant]
     Indication: PRODUCT USED FOR UNKNOWN INDICATION
     Dosage: UNK, UNKNOWN
     Route: 042
     Dates: start: 20130408
  22. AMLODIPINE BESYLATE [Concomitant]
     Indication: PRODUCT USED FOR UNKNOWN INDICATION
     Dosage: 10 MG, 1X/DAY:QD
     Route: 048
     Dates: start: 20130604
  23. LIDOCAINE AND PRILOCAINE [Concomitant]
     Indication: PRODUCT USED FOR UNKNOWN INDICATION
     Dosage: 2.5 %, AS REQ^D (BEFORE PROCEDURE)
     Route: 061
     Dates: start: 20130612
  24. METOLAZONE [Concomitant]
     Indication: PRODUCT USED FOR UNKNOWN INDICATION
     Dosage: 5 MG, 1X/DAY:QD
     Route: 048
     Dates: start: 20130605
  25. TORSEMIDE [Concomitant]
     Indication: PRODUCT USED FOR UNKNOWN INDICATION
     Dosage: 20 MG, 2X/DAY:BID
     Route: 048
     Dates: start: 20130530
  26. ZOLPIDEM TARTRATE [Concomitant]
     Indication: SLEEP DISORDER
     Dosage: 10 MG, AS REQ^D (BEDTIME)
     Route: 048
     Dates: start: 20130612
  27. NORVASC [Concomitant]
     Indication: PRODUCT USED FOR UNKNOWN INDICATION
     Dosage: UNK UNK, UNKNOWN
     Route: 065
     Dates: start: 20130605
  28. ERYTHROPOIETIN [Concomitant]
     Indication: ANAEMIA
     Dosage: UNK UNK, UNKNOWN
     Route: 065

REACTIONS (19)
  - Kidney transplant rejection [Unknown]
  - Glomerulonephritis [Unknown]
  - Abnormal weight gain [Unknown]
  - Weight decreased [Unknown]
  - Depressed mood [Unknown]
  - Diarrhoea [Unknown]
  - Oedema peripheral [Unknown]
  - Dyspnoea [Unknown]
  - Hypomagnesaemia [Unknown]
  - Metabolic acidosis [Unknown]
  - Proteinuria [Unknown]
  - Blood pressure abnormal [Unknown]
  - Fluid imbalance [Unknown]
  - Blood creatine increased [Unknown]
  - Swelling [Unknown]
  - Fluid retention [Unknown]
  - Insomnia [Unknown]
  - Blood pressure increased [Unknown]
  - Fatigue [Unknown]
